FAERS Safety Report 12214252 (Version 1)
Quarter: 2016Q1

REPORT INFORMATION
  Report Type: Spontaneous
  Country: US (occurrence: None)
  Receive Date: 20160325
  Receipt Date: 20160325
  Transmission Date: 20160526
  Serious: No
  Sender: FDA-Public Use
  Company Number: None

PATIENT
  Age: 53 Year
  Sex: Female

DRUGS (6)
  1. RANITIDINE [Concomitant]
     Active Substance: RANITIDINE\RANITIDINE HYDROCHLORIDE
  2. PLEGRIDY [Suspect]
     Active Substance: PEGINTERFERON BETA-1A
     Indication: MULTIPLE SCLEROSIS
     Dosage: 64 UG 1 SC EVERY 14 DAYS SUBCUTANEOUS
     Route: 058
     Dates: start: 20160318, end: 20160324
  3. METOPROLOL. [Concomitant]
     Active Substance: METOPROLOL
  4. PHENYTOIN. [Concomitant]
     Active Substance: PHENYTOIN
  5. OMEPRAZOLE. [Concomitant]
     Active Substance: OMEPRAZOLE
  6. GABAPENTIN. [Concomitant]
     Active Substance: GABAPENTIN

REACTIONS (2)
  - Influenza like illness [None]
  - Injection site reaction [None]

NARRATIVE: CASE EVENT DATE: 20160324
